FAERS Safety Report 6415161-2 (Version None)
Quarter: 2009Q4

REPORT INFORMATION
  Report Type: 
  Country: None (occurrence: None)
  Receive Date: 20091027
  Receipt Date: 20091020
  Transmission Date: 20100525
  Serious: Yes (Hospitalization)
  Sender: FDA-Public Use
  Company Number: US-BIOGENIDEC-2009BI030672

PATIENT
  Age: 46 Year
  Sex: Female
  Weight: 68 kg

DRUGS (3)
  1. AVONEX [Suspect]
     Indication: MULTIPLE SCLEROSIS
     Route: 030
     Dates: start: 19981201
  2. AVONEX [Suspect]
     Route: 030
     Dates: end: 20080501
  3. PROCRIT [Concomitant]
     Indication: IMMUNE SYSTEM DISORDER

REACTIONS (4)
  - ANXIETY [None]
  - CORONARY ARTERY OCCLUSION [None]
  - EXCORIATION [None]
  - MYOCARDIAL INFARCTION [None]
